FAERS Safety Report 9866986 (Version 1)
Quarter: 2014Q1

REPORT INFORMATION
  Report Type: Spontaneous
  Country: US (occurrence: None)
  Receive Date: 20140131
  Receipt Date: 20140131
  Transmission Date: 20141002
  Serious: Yes (Hospitalization, Other)
  Sender: FDA-Public Use
  Company Number: 2014P1000385

PATIENT
  Age: 48 Year
  Sex: Female

DRUGS (4)
  1. ACTIMMUNE [Suspect]
     Indication: CHRONIC GRANULOMATOUS DISEASE
     Dosage: TIW; SC
     Route: 058
     Dates: end: 1992
  2. UNSPECIFIED EPILEPSY [Concomitant]
  3. MEDICATIONS UNSPECIFIED [Concomitant]
  4. ANTIFUNGALS [Concomitant]

REACTIONS (1)
  - Neutropenia [None]
